FAERS Safety Report 7874650-4 (Version None)
Quarter: 2011Q4

REPORT INFORMATION
  Report Type: 
  Country: None (occurrence: None)
  Receive Date: 20111031
  Receipt Date: 20111019
  Transmission Date: 20120403
  Serious: Yes (Other)
  Sender: FDA-Public Use
  Company Number: JP-SP-2011-10367

PATIENT
  Sex: Male

DRUGS (1)
  1. IMMUCYST [Suspect]
     Indication: BLADDER CANCER
     Dosage: NOT REPORTED
     Route: 065

REACTIONS (5)
  - URETHRAL PAIN [None]
  - AGITATION [None]
  - CARDIAC DISORDER [None]
  - DYSURIA [None]
  - HAEMATURIA [None]
